FAERS Safety Report 15449496 (Version 1)
Quarter: 2018Q4

REPORT INFORMATION
  Report Type: Spontaneous
  Country: US (occurrence: US)
  Receive Date: 20181001
  Receipt Date: 20181001
  Transmission Date: 20190204
  Serious: No
  Sender: FDA-Public Use
  Company Number: US-ASTRAZENECA-2018SF23222

PATIENT
  Sex: Male

DRUGS (2)
  1. QUETIAPINE FUMARATE. [Suspect]
     Active Substance: QUETIAPINE FUMARATE
     Dosage: HE WOULD TAKE IT AT NIGHT AND WAS ONCE TAKING 400MG AND AT ANOTHER TIME TAKING ONLY 150MG.
     Route: 048
     Dates: start: 201611, end: 20180520
  2. ABILIFY [Concomitant]
     Active Substance: ARIPIPRAZOLE

REACTIONS (6)
  - Body temperature increased [Not Recovered/Not Resolved]
  - Somnolence [Unknown]
  - Abdominal pain [Not Recovered/Not Resolved]
  - Feeling abnormal [Not Recovered/Not Resolved]
  - Weight decreased [Unknown]
  - Intentional product misuse [Unknown]
